FAERS Safety Report 12328543 (Version 1)
Quarter: 2016Q2

REPORT INFORMATION
  Report Type: Spontaneous
  Country: US (occurrence: US)
  Receive Date: 20160503
  Receipt Date: 20160503
  Transmission Date: 20160815
  Serious: No
  Sender: FDA-Public Use
  Company Number: US-BEH-2015049068

PATIENT
  Age: 67 Year
  Sex: Female
  Weight: 92 kg

DRUGS (47)
  1. BUDESONIDE. [Concomitant]
     Active Substance: BUDESONIDE
  2. ACYCLOVIR. [Concomitant]
     Active Substance: ACYCLOVIR
  3. LEVOTHYROXINE. [Concomitant]
     Active Substance: LEVOTHYROXINE
  4. BIOTENE NOS [Concomitant]
     Active Substance: CETYLPYRIDINIUM CHLORIDE OR SODIUM FLUORIDE OR SODIUM MONOFLUOROPHOSPHATE OR GLUCOSE OXIDASE\LACTOFERRIN\LACTOPEROXIDASE BOVINE\LYSOZYME
  5. MIRALAX [Concomitant]
     Active Substance: POLYETHYLENE GLYCOL 3350
  6. LASIX [Concomitant]
     Active Substance: FUROSEMIDE
  7. BYSTOLIC [Concomitant]
     Active Substance: NEBIVOLOL HYDROCHLORIDE
  8. HIZENTRA [Suspect]
     Active Substance: HUMAN IMMUNOGLOBULIN G
     Indication: IMMUNODEFICIENCY COMMON VARIABLE
     Dosage: ??-???-2012
     Route: 058
  9. ACETAMINOPHEN. [Concomitant]
     Active Substance: ACETAMINOPHEN
  10. PREVIDENT [Concomitant]
     Active Substance: SODIUM FLUORIDE
  11. RESOURCE THICKENUP [Concomitant]
  12. GAS RELIEF [Concomitant]
     Active Substance: DIMETHICONE
  13. MELATONIN [Concomitant]
     Active Substance: MELATONIN
  14. SPORANOX [Concomitant]
     Active Substance: ITRACONAZOLE
  15. VICODIN [Concomitant]
     Active Substance: ACETAMINOPHEN\HYDROCODONE BITARTRATE
  16. LIDOCAINE. [Concomitant]
     Active Substance: LIDOCAINE
  17. CELLCEPT [Concomitant]
     Active Substance: MYCOPHENOLATE MOFETIL\MYCOPHENOLATE MOFETIL HYDROCHLORIDE
  18. VOLTAREN [Concomitant]
     Active Substance: DICLOFENAC SODIUM
  19. POTASSIUM CL ER [Concomitant]
     Active Substance: POTASSIUM CHLORIDE
  20. COD LIVER OIL [Concomitant]
     Active Substance: COD LIVER OIL
  21. VERAPAMIL [Concomitant]
     Active Substance: VERAPAMIL HYDROCHLORIDE
  22. PILOCARPINE. [Concomitant]
     Active Substance: PILOCARPINE
  23. VALIUM [Concomitant]
     Active Substance: DIAZEPAM
  24. DULCOLAX SS [Concomitant]
  25. CALCIUM+VITAMIN D [Concomitant]
     Active Substance: CALCIUM\VITAMIN D
  26. BACLOFEN. [Concomitant]
     Active Substance: BACLOFEN
  27. HIZENTRA [Suspect]
     Active Substance: HUMAN IMMUNOGLOBULIN G
     Dosage: ??-???-2012
     Route: 058
  28. REFRESH EYE DROPS [Concomitant]
  29. PREDNISONE. [Concomitant]
     Active Substance: PREDNISONE
  30. ATIVAN [Concomitant]
     Active Substance: LORAZEPAM
  31. CLOBETASOL [Concomitant]
     Active Substance: CLOBETASOL
  32. SUPER B COMPLEX [Concomitant]
     Active Substance: CYANOCOBALAMIN\DEXPANTHENOL\NIACINAMIDE\PYRIDOXINE HYDROCHLORIDE\RIBOFLAVIN 5^-PHOSPHATE SODIUM\THIAMINE HYDROCHLORIDE\VITAMIN B COMPLEX
  33. PONARIS NASAL EMOLLIENT [Concomitant]
     Active Substance: EUCALYPTUS OIL\IODINE\PINE NEEDLE OIL (PINUS MUGO)\TURPENTINE OIL
  34. VICODIN [Concomitant]
     Active Substance: ACETAMINOPHEN\HYDROCODONE BITARTRATE
  35. MYCOPHENOLATE [Concomitant]
     Active Substance: MYCOPHENOLIC ACID
  36. ONDANSETRON [Concomitant]
     Active Substance: ONDANSETRON
  37. DORZOLAMIDE TIMOLOL [Concomitant]
     Active Substance: DORZOLAMIDE
  38. COLACE [Concomitant]
     Active Substance: DOCUSATE SODIUM
  39. FORTEO [Concomitant]
     Active Substance: TERIPARATIDE
  40. ZEGERID [Concomitant]
     Active Substance: OMEPRAZOLE\SODIUM BICARBONATE
  41. MIDODRINE [Concomitant]
     Active Substance: MIDODRINE
  42. DIPHENHYDRAMINE. [Concomitant]
     Active Substance: DIPHENHYDRAMINE
  43. EPIPEN [Concomitant]
     Active Substance: EPINEPHRINE
  44. TRIAMCINOLONE [Concomitant]
     Active Substance: TRIAMCINOLONE
  45. NORCO [Concomitant]
     Active Substance: ACETAMINOPHEN\HYDROCODONE BITARTRATE
  46. AMITRIPTYLINE [Concomitant]
     Active Substance: AMITRIPTYLINE
  47. ASPIRIN. [Concomitant]
     Active Substance: ASPIRIN

REACTIONS (3)
  - Vomiting [Recovered/Resolved]
  - Nausea [Recovered/Resolved]
  - Diarrhoea [Recovered/Resolved]

NARRATIVE: CASE EVENT DATE: 20150220
